FAERS Safety Report 20875224 (Version 2)
Quarter: 2022Q2

REPORT INFORMATION
  Report Type: Report from Study
  Country: US (occurrence: US)
  Receive Date: 20220526
  Receipt Date: 20220530
  Transmission Date: 20220721
  Serious: Yes (Hospitalization)
  Sender: FDA-Public Use
  Company Number: US-ABBVIE-22K-163-4407361-00

PATIENT
  Sex: Female

DRUGS (2)
  1. VENCLEXTA [Suspect]
     Active Substance: VENETOCLAX
     Indication: Acute monocytic leukaemia
     Dosage: TAKE 2 TABLETS BY MOUTH DAILY WITH FOOD AND WATER
     Route: 048
  2. VENCLEXTA [Suspect]
     Active Substance: VENETOCLAX
     Indication: Acute monocytic leukaemia

REACTIONS (5)
  - Full blood count decreased [Recovering/Resolving]
  - Blood sodium decreased [Recovering/Resolving]
  - Blood potassium decreased [Recovering/Resolving]
  - Haemoglobin decreased [Recovering/Resolving]
  - Platelet count decreased [Recovering/Resolving]
